FAERS Safety Report 21451208 (Version 1)
Quarter: 2022Q4

REPORT INFORMATION
  Report Type: Spontaneous
  Country: US (occurrence: None)
  Receive Date: 20221012
  Receipt Date: 20221012
  Transmission Date: 20230112
  Serious: Yes (Hospitalization)
  Sender: FDA-Public Use
  Company Number: None

PATIENT
  Age: 76 Year
  Sex: Male
  Weight: 75.29 kg

DRUGS (1)
  1. BREYANZI [Suspect]
     Active Substance: LISOCABTAGENE MARALEUCEL
     Indication: Diffuse large B-cell lymphoma
     Route: 042
     Dates: start: 20220706, end: 20220706

REACTIONS (6)
  - Pyrexia [None]
  - Cytokine release syndrome [None]
  - Inflammatory marker increased [None]
  - Headache [None]
  - Neurotoxicity [None]
  - Tremor [None]

NARRATIVE: CASE EVENT DATE: 20220711
